FAERS Safety Report 13933273 (Version 1)
Quarter: 2017Q3

REPORT INFORMATION
  Report Type: Spontaneous
  Country: SE (occurrence: SE)
  Receive Date: 20170904
  Receipt Date: 20170904
  Transmission Date: 20171127
  Serious: Yes (Other)
  Sender: FDA-Public Use
  Company Number: SE-ALLERGAN-1748952US

PATIENT
  Age: 66 Year
  Sex: Female

DRUGS (8)
  1. AZOPT [Suspect]
     Active Substance: BRINZOLAMIDE
     Dosage: UNK
     Route: 065
     Dates: start: 20161011, end: 20161108
  2. TAFLOTAN [Suspect]
     Active Substance: TAFLUPROST
     Indication: INTRAOCULAR PRESSURE INCREASED
     Route: 065
     Dates: start: 201412, end: 20161202
  3. AZOPT [Suspect]
     Active Substance: BRINZOLAMIDE
     Indication: INTRAOCULAR PRESSURE INCREASED
     Dosage: UNK
     Route: 065
     Dates: start: 20160919, end: 20161004
  4. BRIMORATIO [Suspect]
     Active Substance: BRIMONIDINE TARTRATE
     Indication: INTRAOCULAR PRESSURE INCREASED
     Route: 065
     Dates: start: 20161109, end: 20161114
  5. BRIMORATIO [Suspect]
     Active Substance: BRIMONIDINE TARTRATE
     Dosage: UNK
     Route: 065
     Dates: start: 20161123, end: 20161125
  6. LUMIGAN [Suspect]
     Active Substance: BIMATOPROST
     Indication: INTRAOCULAR PRESSURE INCREASED
     Route: 065
     Dates: start: 20161203, end: 2017
  7. TIMOLOL MALEATE 0.5% SOL [Suspect]
     Active Substance: TIMOLOL MALEATE
     Indication: INTRAOCULAR PRESSURE INCREASED
     Dosage: UNK UNK, QHS
     Route: 065
     Dates: start: 201308, end: 20160919
  8. AZARGA [Suspect]
     Active Substance: BRINZOLAMIDE\TIMOLOL MALEATE
     Indication: INTRAOCULAR PRESSURE INCREASED
     Route: 065
     Dates: start: 20160827, end: 20160919

REACTIONS (10)
  - Cardiac disorder [Unknown]
  - Arrhythmia [Unknown]
  - Heart rate increased [Unknown]
  - Hypertension [Unknown]
  - Heart rate decreased [Unknown]
  - Palpitations [Unknown]
  - Cardiac flutter [Unknown]
  - Sleep disorder [Unknown]
  - Limb discomfort [Unknown]
  - Asthenia [Unknown]

NARRATIVE: CASE EVENT DATE: 2014
